FAERS Safety Report 13565641 (Version 1)
Quarter: 2017Q2

REPORT INFORMATION
  Report Type: Spontaneous
  Country: US (occurrence: US)
  Receive Date: 20170519
  Receipt Date: 20170519
  Transmission Date: 20170830
  Serious: No
  Sender: FDA-Public Use
  Company Number: US-BION-20160421

PATIENT
  Age: 34 Year
  Sex: Female

DRUGS (1)
  1. IBUPROFEN CAPSULES [Suspect]
     Active Substance: IBUPROFEN
     Dosage: 4 DF
     Route: 048

REACTIONS (4)
  - Product odour abnormal [Unknown]
  - Nausea [Recovered/Resolved]
  - Abdominal pain upper [Recovered/Resolved]
  - Poor quality drug administered [Unknown]

NARRATIVE: CASE EVENT DATE: 20160808
